FAERS Safety Report 9904596 (Version 4)
Quarter: 2015Q2

REPORT INFORMATION
  Report Type: Spontaneous
  Country: US (occurrence: US)
  Receive Date: 20140218
  Receipt Date: 20150519
  Transmission Date: 20150821
  Serious: Yes (Other)
  Sender: FDA-Public Use
  Company Number: US-AMGEN-USASP2014010520

PATIENT
  Age: 31 Year
  Sex: Female

DRUGS (1)
  1. ENBREL [Suspect]
     Active Substance: ETANERCEPT
     Indication: PSORIASIS
     Dosage: UNK, QWK
     Route: 065
     Dates: start: 20121001

REACTIONS (5)
  - Skin irritation [Unknown]
  - Vaginal haemorrhage [Recovered/Resolved]
  - Pregnancy [Recovered/Resolved]
  - Rash [Unknown]
  - Nail pitting [Unknown]

NARRATIVE: CASE EVENT DATE: 2013
